FAERS Safety Report 15773410 (Version 3)
Quarter: 2019Q1

REPORT INFORMATION
  Report Type: Spontaneous
  Country: US (occurrence: US)
  Receive Date: 20181228
  Receipt Date: 20190122
  Transmission Date: 20190417
  Serious: Yes (Hospitalization, Other)
  Sender: FDA-Public Use
  Company Number: US-GILEAD-2018-0381731

PATIENT
  Age: 69 Year
  Sex: Male
  Weight: 73.92 kg

DRUGS (3)
  1. VOSEVI [Suspect]
     Active Substance: SOFOSBUVIR\VELPATASVIR\VOXILAPREVIR
     Indication: HEPATITIS C VIRUS TEST POSITIVE
     Dosage: 1 DF
     Route: 048
  2. LINZESS [Concomitant]
     Active Substance: LINACLOTIDE
     Indication: CONSTIPATION
     Dosage: 145 MEQ
     Route: 048
  3. TAMSULOISIN [Concomitant]
     Indication: PROSTATOMEGALY
     Dosage: UNK
     Route: 048

REACTIONS (2)
  - Pancreatitis [Not Recovered/Not Resolved]
  - Pancreatic carcinoma [Not Recovered/Not Resolved]

NARRATIVE: CASE EVENT DATE: 20181029
